FAERS Safety Report 8772410 (Version 1)
Quarter: 2012Q4

REPORT INFORMATION
  Report Type: 
  Country: US (occurrence: US)
  Receive Date: 20120906
  Receipt Date: 20120906
  Transmission Date: 20130627
  Serious: Yes (Hospitalization)
  Sender: FDA-Public Use
  Company Number: US-US-EMD SERONO, INC.-7158262

PATIENT
  Sex: Female

DRUGS (5)
  1. REBIF [Suspect]
     Indication: MULTIPLE SCLEROSIS
     Route: 058
     Dates: start: 20030127, end: 200307
  2. REBIF [Suspect]
     Route: 058
     Dates: start: 200404, end: 200608
  3. REBIF [Suspect]
     Route: 058
     Dates: start: 200705
  4. TYLENOL [Concomitant]
     Indication: PREMEDICATION
  5. UNSPECIFED MEDICATION [Concomitant]
     Indication: CONTRACEPTION

REACTIONS (3)
  - Vertigo CNS origin [Recovered/Resolved]
  - Live birth [Recovered/Resolved]
  - Maternal exposure timing unspecified [Recovered/Resolved]
